FAERS Safety Report 6747800-0 (Version None)
Quarter: 2010Q2

REPORT INFORMATION
  Report Type: 
  Country: None (occurrence: None)
  Receive Date: 20100528
  Receipt Date: 20100519
  Transmission Date: 20101027
  Serious: Yes (Other)
  Sender: FDA-Public Use
  Company Number: JP-PFIZER INC-2010063783

PATIENT
  Age: 61 Year
  Sex: Female

DRUGS (9)
  1. AZITHROMYCIN [Suspect]
     Indication: OROPHARYNGEAL PAIN
     Route: 048
     Dates: start: 20080503
  2. AZITHROMYCIN [Suspect]
     Indication: PYREXIA
  3. AZULFIDINE [Suspect]
     Dosage: 500 MG, 2X/DAY
     Route: 048
     Dates: start: 20080404
  4. LOXONIN [Suspect]
     Dosage: 60 MG, 3X/DAY
     Route: 048
     Dates: start: 20080404
  5. MUCOSTA [Suspect]
     Dosage: 100 MG, 3X/DAY
     Route: 048
     Dates: start: 20080404
  6. MEVALOTIN [Suspect]
     Dosage: 10 MG, 1X/DAY
     Route: 048
     Dates: start: 20080404
  7. RISEDRONATE SODIUM HYDRATE [Suspect]
     Dosage: 17.5 MG, 1X/DAY
     Route: 048
     Dates: start: 20080404
  8. ONE-ALPHA [Suspect]
     Dosage: 1 UG, 1X/DAY
     Route: 048
     Dates: start: 20080404
  9. TAKEPRON [Suspect]
     Dosage: 15 MG, 1X/DAY
     Route: 048
     Dates: start: 20080404

REACTIONS (2)
  - AGRANULOCYTOSIS [None]
  - THROMBOCYTOPENIA [None]
